FAERS Safety Report 5520851-X (Version None)
Quarter: 2007Q4

REPORT INFORMATION
  Report Type: 
  Country: None (occurrence: None)
  Receive Date: 20071119
  Receipt Date: 20071109
  Transmission Date: 20080405
  Serious: Yes (Life-Threatening, Hospitalization)
  Sender: FDA-Public Use
  Company Number: B0480559A

PATIENT
  Age: 67 Year
  Sex: Female

DRUGS (2)
  1. ARIXTRA [Suspect]
     Dosage: 2.5MG PER DAY
     Route: 058
     Dates: start: 20070501, end: 20070510
  2. LOVENOX [Concomitant]

REACTIONS (3)
  - HYPOVOLAEMIC SHOCK [None]
  - PERITONEAL HAEMORRHAGE [None]
  - SHOCK HAEMORRHAGIC [None]
